FAERS Safety Report 10433601 (Version 3)
Quarter: 2015Q1

REPORT INFORMATION
  Report Type: Report from Study
  Country: FR (occurrence: FR)
  Receive Date: 20140905
  Receipt Date: 20150224
  Transmission Date: 20150720
  Serious: Yes (Hospitalization, Other)
  Sender: FDA-Public Use
  Company Number: PHHO2014FR011794

PATIENT

DRUGS (8)
  1. FLUCONAZOLE. [Concomitant]
     Active Substance: FLUCONAZOLE
  2. ACTISKENAN [Concomitant]
     Active Substance: MORPHINE SULFATE
     Dosage: 20 MG, UNK
  3. DUROGESIC [Concomitant]
     Active Substance: FENTANYL
     Dosage: 100 MG, UNK
  4. GEMZAR [Suspect]
     Active Substance: GEMCITABINE HYDROCHLORIDE
  5. AFINITOR [Suspect]
     Active Substance: EVEROLIMUS
     Indication: TRANSITIONAL CELL CARCINOMA
     Dosage: 5 MG, BID
     Route: 048
     Dates: start: 20140103, end: 20140505
  6. VOLTARENE [Concomitant]
     Active Substance: DICLOFENAC SODIUM
     Dosage: 75 MG, UNK
  7. CARBOPLATIN. [Suspect]
     Active Substance: CARBOPLATIN
  8. OMEPRAZOLE. [Concomitant]
     Active Substance: OMEPRAZOLE
     Dosage: 20 MG, UNK

REACTIONS (5)
  - Cytopenia [Recovered/Resolved]
  - Pelvic pain [Recovered/Resolved]
  - Acute kidney injury [Recovered/Resolved]
  - Anaemia [Recovered/Resolved]
  - General physical health deterioration [Recovered/Resolved]

NARRATIVE: CASE EVENT DATE: 20140522
